FAERS Safety Report 7547238-2 (Version None)
Quarter: 2011Q2

REPORT INFORMATION
  Report Type: 
  Country: None (occurrence: None)
  Receive Date: 20110614
  Receipt Date: 20040616
  Transmission Date: 20111010
  Serious: Yes (Hospitalization, Other)
  Sender: FDA-Public Use
  Company Number: PHFR2004GB01584

PATIENT
  Sex: Male

DRUGS (11)
  1. CLOZARIL [Suspect]
     Indication: SCHIZOPHRENIA
     Dosage: 300 MG/DAY
     Dates: start: 20040303
  2. FOLIC ACID [Concomitant]
     Dosage: 5 MG/DAY
     Route: 048
  3. MULTI-VITAMINS [Concomitant]
     Route: 048
  4. FRESUBIN [Concomitant]
     Dosage: 200 ML, TID
     Route: 048
  5. COD-LIVER OIL [Concomitant]
     Route: 048
  6. FERROUS SULFATE TAB [Concomitant]
     Dosage: 400 MG/DAY
     Route: 048
  7. PROCYCLIDINE HYDROCHLORIDE 2MG TAB [Concomitant]
     Dosage: 25 MG/DAY
     Route: 048
  8. OLANZAPINE [Concomitant]
     Dosage: 2.5 MG/DAY
     Route: 048
  9. METHOTREXATE [Concomitant]
     Dosage: 15 MG, QW
  10. LITHIUM CARBONATE [Concomitant]
     Dosage: 600 MG/DAY
     Route: 048
  11. ARTHROTEC [Concomitant]
     Dosage: TDS
     Route: 065

REACTIONS (9)
  - DECREASED APPETITE [None]
  - MONOCYTE COUNT INCREASED [None]
  - ABDOMINAL PAIN [None]
  - HAEMOGLOBIN DECREASED [None]
  - GASTROINTESTINAL INFECTION [None]
  - C-REACTIVE PROTEIN INCREASED [None]
  - VOMITING [None]
  - INFREQUENT BOWEL MOVEMENTS [None]
  - PYREXIA [None]
